FAERS Safety Report 10872627 (Version 1)
Quarter: 2015Q1

REPORT INFORMATION
  Report Type: Spontaneous
  Country: US (occurrence: US)
  Receive Date: 20150227
  Receipt Date: 20150227
  Transmission Date: 20150721
  Serious: No
  Sender: FDA-Public Use
  Company Number: US-009507513-1502USA009556

PATIENT
  Age: 21 Year
  Sex: Female
  Weight: 67.12 kg

DRUGS (1)
  1. NEXPLANON [Suspect]
     Active Substance: ETONOGESTREL
     Indication: CONTRACEPTION
     Dosage: 1 IMPLANT/ 3 YEARS, LEFT ARM
     Route: 059
     Dates: start: 20150107

REACTIONS (6)
  - Fatigue [Unknown]
  - Menorrhagia [Not Recovered/Not Resolved]
  - Acne [Unknown]
  - Menstrual disorder [Unknown]
  - Hormone level abnormal [Unknown]
  - Menstruation delayed [Recovered/Resolved]

NARRATIVE: CASE EVENT DATE: 2015
